FAERS Safety Report 6468396-7 (Version None)
Quarter: 2009Q4

REPORT INFORMATION
  Report Type: 
  Country: None (occurrence: None)
  Receive Date: 20091203
  Receipt Date: 20091123
  Transmission Date: 20100525
  Serious: Yes (Hospitalization)
  Sender: FDA-Public Use
  Company Number: TW-BAXTER-2009BH017155

PATIENT
  Age: 44 Year
  Sex: Female

DRUGS (1)
  1. TISSUCOL/TISSEEL DUO STIM4 [Suspect]
     Indication: SPINAL OPERATION
     Route: 065

REACTIONS (2)
  - BACK PAIN [None]
  - HYPOAESTHESIA [None]
